FAERS Safety Report 4960703-7 (Version None)
Quarter: 2006Q1

REPORT INFORMATION
  Report Type: 
  Country: None (occurrence: None)
  Receive Date: 20060331
  Receipt Date: 20060331
  Transmission Date: 20060701
  Serious: Yes (Death)
  Sender: FDA-Public Use
  Company Number: None

PATIENT
  Sex: Female
  Weight: 111.81 kg

DRUGS (5)
  1. CARBOPLATIN [Suspect]
     Indication: OVARIAN EPITHELIAL CANCER
     Dosage: 798 MG
     Dates: start: 20060315, end: 20060315
  2. TAXOL [Suspect]
     Dosage: 350 MG
     Dates: start: 20060315, end: 20060315
  3. LEXAPRO [Concomitant]
  4. LORTAB [Concomitant]
  5. SEROQUEL [Concomitant]

REACTIONS (23)
  - ABDOMINAL PAIN [None]
  - ARRHYTHMIA [None]
  - BLOOD ALBUMIN DECREASED [None]
  - BLOOD CHLORIDE DECREASED [None]
  - BLOOD POTASSIUM DECREASED [None]
  - BLOOD PRESSURE DIASTOLIC DECREASED [None]
  - BLOOD SODIUM DECREASED [None]
  - CARDIO-RESPIRATORY ARREST [None]
  - CHILLS [None]
  - CLOSTRIDIUM DIFFICILE TOXIN TEST POSITIVE [None]
  - CULTURE URINE POSITIVE [None]
  - FATIGUE [None]
  - HAEMATOCRIT DECREASED [None]
  - HAEMOGLOBIN DECREASED [None]
  - LOSS OF CONSCIOUSNESS [None]
  - NAUSEA [None]
  - NEUTROPENIA [None]
  - POLLAKIURIA [None]
  - PULMONARY EMBOLISM [None]
  - PYREXIA [None]
  - SEPTIC SHOCK [None]
  - VENTRICULAR FIBRILLATION [None]
  - WHITE BLOOD CELL COUNT DECREASED [None]
